FAERS Safety Report 13006846 (Version 2)
Quarter: 2016Q4

REPORT INFORMATION
  Report Type: Spontaneous
  Country: IT (occurrence: IT)
  Receive Date: 20161207
  Receipt Date: 20161227
  Transmission Date: 20170207
  Serious: Yes (Hospitalization)
  Sender: FDA-Public Use
  Company Number: IT-TEVA-716939ACC

PATIENT
  Age: 89 Year
  Sex: Female
  Weight: 65 kg

DRUGS (9)
  1. RAMIPRIL. [Interacting]
     Active Substance: RAMIPRIL
     Indication: CARDIOMYOPATHY
     Dosage: 5 MILLIGRAM DAILY;
     Route: 048
     Dates: start: 20161003, end: 20161029
  2. CARDIOASPIRIN [Concomitant]
     Active Substance: ASPIRIN
     Indication: PRODUCT USED FOR UNKNOWN INDICATION
     Dosage: 100 MG
     Route: 048
  3. CITALOPRAM [Concomitant]
     Active Substance: CITALOPRAM HYDROBROMIDE
     Indication: PRODUCT USED FOR UNKNOWN INDICATION
     Route: 048
  4. LASITONE - 25 MG + 37 MG CAPSULE RIGIDE - SANOFI S.P.A. [Interacting]
     Active Substance: FUROSEMIDE\SPIRONOLACTONE
     Indication: CARDIOMYOPATHY
     Dosage: 1 DOSAGE FORMS DAILY;
     Route: 048
     Dates: start: 20161003, end: 20161029
  5. GAVISCON [Concomitant]
     Active Substance: ALUMINUM HYDROXIDE\MAGNESIUM CARBONATE
     Indication: PRODUCT USED FOR UNKNOWN INDICATION
     Route: 048
  6. BISOPROLOL [Suspect]
     Active Substance: BISOPROLOL
     Indication: CARDIOMYOPATHY
     Dosage: 2.5 MILLIGRAM DAILY;
     Route: 048
     Dates: start: 20161003, end: 20161029
  7. BROMAZEPAM [Concomitant]
     Active Substance: BROMAZEPAM
     Indication: PRODUCT USED FOR UNKNOWN INDICATION
     Dosage: 10 GTT
     Route: 048
  8. EUTIROX - 75 MICROGRAMMI COMPRESSE [Concomitant]
     Active Substance: LEVOTHYROXINE SODIUM
     Indication: PRODUCT USED FOR UNKNOWN INDICATION
     Dosage: 75 UG
     Route: 048
  9. PANTOPRAZOLE [Concomitant]
     Active Substance: PANTOPRAZOLE SODIUM
     Indication: PRODUCT USED FOR UNKNOWN INDICATION
     Dosage: 40 MG
     Route: 048

REACTIONS (4)
  - Acute kidney injury [Recovering/Resolving]
  - Nodal arrhythmia [Recovering/Resolving]
  - Hyperkalaemia [Recovering/Resolving]
  - Drug interaction [Unknown]

NARRATIVE: CASE EVENT DATE: 20161029
